FAERS Safety Report 7370200-X (Version None)
Quarter: 2011Q1

REPORT INFORMATION
  Report Type: 
  Country: None (occurrence: None)
  Receive Date: 20110323
  Receipt Date: 20100401
  Transmission Date: 20110831
  Serious: No
  Sender: FDA-Public Use
  Company Number: US-ASTRAZENECA-2010SE14522

PATIENT
  Age: 62 Year
  Sex: Female

DRUGS (2)
  1. HYDROCHLOROTHIAZIDE [Concomitant]
  2. LISINOPRIL [Suspect]
     Route: 048

REACTIONS (2)
  - COUGH [None]
  - BLOOD PRESSURE FLUCTUATION [None]
